FAERS Safety Report 4424169-8 (Version None)
Quarter: 2004Q3

REPORT INFORMATION
  Report Type: 
  Country: None (occurrence: None)
  Receive Date: 20040810
  Receipt Date: 20040810
  Transmission Date: 20050211
  Serious: Yes (Other)
  Sender: FDA-Public Use
  Company Number: None

PATIENT
  Sex: Female

DRUGS (4)
  1. FUROSEMIDE 40 MG MYLAN (BRAND) [Suspect]
     Indication: OEDEMA
     Dosage: ONE DAILY PO
     Route: 048
     Dates: start: 20040615
  2. COUMADIN [Concomitant]
  3. ZIAC [Concomitant]
  4. METFORMIN HCL [Concomitant]

REACTIONS (4)
  - MEDICATION ERROR [None]
  - PALPITATIONS [None]
  - PHARMACEUTICAL PRODUCT COMPLAINT [None]
  - SELF-MEDICATION [None]
